FAERS Safety Report 7605617-9 (Version None)
Quarter: 2011Q3

REPORT INFORMATION
  Report Type: 
  Country: None (occurrence: None)
  Receive Date: 20110713
  Receipt Date: 20110706
  Transmission Date: 20111222
  Serious: Yes (Hospitalization)
  Sender: FDA-Public Use
  Company Number: AU-JNJFOC-20110702934

PATIENT
  Age: 47 Year
  Sex: Female

DRUGS (17)
  1. LEVOTHYROXINE SODIUM [Concomitant]
     Indication: HYPOTHYROIDISM
     Dosage: 0.5 TABLET FOR 5 DAYS, QDX2 DAYS
     Route: 065
     Dates: start: 19940101
  2. ESTROGENS CONJUGATED [Concomitant]
     Indication: HORMONE REPLACEMENT THERAPY
     Route: 065
     Dates: start: 20090101
  3. ESTRIOL [Concomitant]
     Route: 065
     Dates: start: 20101117
  4. ONDANSETRON [Concomitant]
     Indication: ANTIEMETIC SUPPORTIVE CARE
     Route: 065
     Dates: start: 20100910
  5. FUROSEMIDE [Concomitant]
     Indication: FLUID RETENTION
     Route: 065
     Dates: start: 20090201
  6. CANESTEN HC [Concomitant]
     Indication: RASH
     Route: 065
     Dates: start: 20101122
  7. LACTOBACILLUS ACIDOPHILUS [Concomitant]
     Indication: ROUTINE HEALTH MAINTENANCE
     Route: 065
     Dates: start: 20050101
  8. METFORMIN HCL [Concomitant]
     Indication: DIABETES MELLITUS
     Route: 065
     Dates: start: 20090909
  9. ESTRIOL [Concomitant]
     Indication: MENOPAUSAL SYMPTOMS
     Dosage: 41 DAYS
     Route: 065
     Dates: start: 20101006, end: 20101116
  10. CHLORAMPHENICOL [Concomitant]
     Indication: PROPHYLAXIS
     Route: 065
     Dates: start: 20110511
  11. SPIRONOLACTONE [Concomitant]
     Indication: FLUID RETENTION
     Route: 065
     Dates: start: 20090201
  12. DEXAMETHASONE [Concomitant]
     Dosage: 8 MG, DAILY X 4 DAYS SURROUNDING CHEMOTHERAPY
     Route: 042
     Dates: start: 20100910
  13. ALL OTHER THERAPEUTIC PRODUCT [Concomitant]
     Indication: PALMAR-PLANTAR ERYTHRODYSAESTHESIA SYNDROME
     Route: 065
     Dates: start: 20110105
  14. DOXORUBICIN HYDROCHLORIDE [Suspect]
     Indication: OVARIAN CANCER
     Route: 042
     Dates: start: 20100908
  15. GRANISETRON [Concomitant]
     Indication: PROPHYLAXIS OF NAUSEA AND VOMITING
     Route: 042
     Dates: start: 20100908
  16. DEXAMETHASONE [Concomitant]
     Indication: PROPHYLAXIS OF NAUSEA AND VOMITING
     Dosage: 8 MG IN CONJUNCTION WITH CHEMOTHERAPY
     Route: 042
     Dates: start: 20100908
  17. ESOMEPRAZOLE MAGNESIUM [Concomitant]
     Indication: GASTROOESOPHAGEAL REFLUX DISEASE
     Route: 065
     Dates: start: 20101020

REACTIONS (3)
  - DEVICE RELATED INFECTION [None]
  - STAPHYLOCOCCAL INFECTION [None]
  - ENTEROCOCCAL INFECTION [None]
